FAERS Safety Report 7224606-X (Version None)
Quarter: 2011Q1

REPORT INFORMATION
  Report Type: 
  Country: None (occurrence: None)
  Receive Date: 20110106
  Receipt Date: 20110106
  Transmission Date: 20110831
  Serious: Yes (Hospitalization)
  Sender: FDA-Public Use
  Company Number: None

PATIENT
  Age: 69 Year
  Sex: Female

DRUGS (8)
  1. METHADONE HYDROCHLORIDE [Suspect]
     Indication: RHEUMATOID ARTHRITIS
     Dosage: 10MG TID PO CHRONIC
     Route: 048
  2. SENOKOT [Concomitant]
  3. CELEXA [Suspect]
  4. PERCOCET [Concomitant]
  5. SIMVASTATIN [Concomitant]
  6. PEPCID [Concomitant]
  7. SPIRONOLACTONE/HYDROCHLOROTHIAZIDE [Concomitant]
  8. GABAPENTIN [Concomitant]

REACTIONS (7)
  - GASTROINTESTINAL HAEMORRHAGE [None]
  - CORONARY ARTERY DISEASE [None]
  - CARDIAC ARREST [None]
  - HAEMORRHAGIC ANAEMIA [None]
  - GASTRIC ULCER [None]
  - TORSADE DE POINTES [None]
  - HYPOKALAEMIA [None]
